FAERS Safety Report 10174549 (Version 2)
Quarter: 2014Q2

REPORT INFORMATION
  Report Type: Spontaneous
  Country: US (occurrence: None)
  Receive Date: 20140416
  Receipt Date: 20140604
  Transmission Date: 20141212
  Serious: Yes (Other)
  Sender: FDA-Public Use
  Company Number: 163-POMAL-14011600

PATIENT
  Age: 78 Year
  Sex: Female
  Weight: 65.32 kg

DRUGS (29)
  1. POMALYST (POMALIDOMIDE) (4 MILLIGRAM, CAPSULES) [Suspect]
     Indication: PLASMA CELL MYELOMA
     Dosage: 21 IN 21 D
     Route: 048
     Dates: start: 201311
  2. CENTRUM  SILVER ULTRA WOMENS (CENTRUM) (TABLETS) [Concomitant]
  3. PANTOPRAZOLE SODIUM (PANTOPRAZOLE SODIUM) (TABLETS) [Concomitant]
  4. XANAX (ALPRAZOLAM) (UNKNOWN) [Concomitant]
  5. DEXAMETHASONE (DEXAMETHASONE) [Concomitant]
  6. SOTALOL (SOTALOL) (UNKNOWN) [Concomitant]
  7. ACYCLOVIR (ACICLOVIR) (UNKNOWN) [Concomitant]
  8. LISINOPRIL (LISINOPRIL) (UNKNOWN) [Concomitant]
  9. FLUCONAZOLE (FLUCONAZOLE) (UNKNOWN) [Concomitant]
  10. ZANTAC (RANITIDINE HYDROCHLORIDE) (UNKNOWN) [Concomitant]
  11. PULMICORT (BUDESONIDE) (UNKNOWN) [Concomitant]
  12. HYDROXYZINE HCL (HYDROXYZINE HYDROCHLORIDE) (UNKNOWN) [Concomitant]
  13. ALBUTEROL (SALBUTAMOL) (UNKNOWN) [Concomitant]
  14. HYDROCODONE/ACETAMINOPHEN (REMEDEINE) (UNKNOWN) [Concomitant]
  15. TYLENOL (PARACETAMOL) (UNKNOWN) [Concomitant]
  16. BYSTOLIC (NEBIVOLOL HYDROCHLORIDE) (UNKNOWN) [Concomitant]
  17. PRADAXA (DABIGATRAN ETEXILATE MESILATE) (UNKNOWN) [Concomitant]
  18. CLARITIN (LORATADINE) (UNKNOWN) [Concomitant]
  19. D-GLUCOSAMINE HCL (GLUCOSAMINE W/VITAMIN D) (UNKNOWN) [Concomitant]
  20. SEPTRA DS (BACTRIM) (UNKNOWN) [Concomitant]
  21. BIOTIN (BIOTIN) (UNKNOWN) [Concomitant]
  22. PROAIR HFA (SALBUTAMOL SULFATE) (UNKNOWN) [Concomitant]
  23. COQ-10 (UBIDECARENONE) (UNKNOWN) [Concomitant]
  24. METAMUCIL (METAMUCIL ^PROCTOR + GAMBLE^) (CAPSULES) [Concomitant]
  25. ACIDOPHILUS PROBIOTIC (LACTOBACCILLUS ACIDOPHILUS) (CAPSULES) [Concomitant]
  26. VITAMIN B12 (CYANOCOBALAMIN) (UNKNOWN) [Concomitant]
  27. ZOFRAN (ONDANSETRON HYDROCHLORIDE) [Concomitant]
  28. KYPROLIS (CARFILZOMIB) [Concomitant]
  29. ZOMETA (ZOLEDRONIC ACID) [Concomitant]

REACTIONS (2)
  - Wound [None]
  - Neuropathy peripheral [None]
